FAERS Safety Report 11864599 (Version 1)
Quarter: 2015Q4

REPORT INFORMATION
  Report Type: Spontaneous
  Country: CH (occurrence: CH)
  Receive Date: 20151223
  Receipt Date: 20151223
  Transmission Date: 20160305
  Serious: Yes (Other)
  Sender: FDA-Public Use
  Company Number: CH-LPDUSPRD-20151043

PATIENT
  Age: 30 Year
  Sex: Male

DRUGS (1)
  1. VENOFER [Suspect]
     Active Substance: IRON SUCROSE
     Dosage: 1 IN 1 D
     Route: 042
     Dates: start: 20151209, end: 20151212

REACTIONS (4)
  - Malaise [Unknown]
  - Pulse abnormal [Unknown]
  - Feeling hot [Unknown]
  - Formication [Unknown]

NARRATIVE: CASE EVENT DATE: 20151209
